FAERS Safety Report 4448674-3 (Version None)
Quarter: 2004Q3

REPORT INFORMATION
  Report Type: 
  Country: None (occurrence: None)
  Receive Date: 20040909
  Receipt Date: 20040820
  Transmission Date: 20050211
  Serious: No
  Sender: FDA-Public Use
  Company Number: F01200402542

PATIENT
  Age: 63 Year

DRUGS (4)
  1. (FONDAPARINUX SODIUM) SOLUTION 2.5 MG [Suspect]
     Indication: ACUTE MYOCARDIAL INFARCTION
     Dosage: 2.5 MG SUBCUTANEOUS
     Route: 058
     Dates: start: 20040820
  2. ACETYLSALICYLIC ACID SRT [Concomitant]
  3. SIMVASTATIN [Concomitant]
  4. VENTOLIN [Concomitant]

REACTIONS (2)
  - CARDIAC PROCEDURE COMPLICATION [None]
  - CATHETER RELATED COMPLICATION [None]
